FAERS Safety Report 4605045-4 (Version None)
Quarter: 2005Q1

REPORT INFORMATION
  Report Type: 
  Country: None (occurrence: None)
  Receive Date: 20050217
  Receipt Date: 20050106
  Transmission Date: 20050727
  Serious: No
  Sender: FDA-Public Use
  Company Number: S05-USA-00074-01

PATIENT
  Age: 90 Year
  Sex: Female

DRUGS (8)
  1. NAMENDA [Suspect]
     Indication: DEMENTIA
     Dosage: 10 MG BID PO
     Route: 048
     Dates: start: 20041222, end: 20050102
  2. NAMENDA [Suspect]
     Indication: DEMENTIA
     Dosage: 5 MG QD PO
     Route: 048
     Dates: start: 20041201, end: 20041207
  3. NAMENDA [Suspect]
     Indication: DEMENTIA
     Dosage: 5 MG BID PO
     Route: 048
     Dates: start: 20041208, end: 20041214
  4. NAMENDA [Suspect]
     Indication: DEMENTIA
     Dosage: 15 MG QD PO
     Route: 048
     Dates: start: 20041215, end: 20041221
  5. LISINOPRIL [Concomitant]
  6. LASIX [Concomitant]
  7. PRAVACHOL [Concomitant]
  8. ACTONEL [Concomitant]

REACTIONS (4)
  - CONFUSIONAL STATE [None]
  - CONSTIPATION [None]
  - DYSPNOEA [None]
  - SKIN TIGHTNESS [None]
